FAERS Safety Report 6585070-7 (Version None)
Quarter: 2010Q1

REPORT INFORMATION
  Report Type: 
  Country: None (occurrence: None)
  Receive Date: 20100217
  Receipt Date: 20100215
  Transmission Date: 20100710
  Serious: Yes (Life-Threatening, Other)
  Sender: FDA-Public Use
  Company Number: GB-B.I. PHARMACEUTICALS,INC./RIDGEFIELD-2010-UK-00127UK

PATIENT
  Age: 36 Year
  Sex: Male

DRUGS (3)
  1. ATROVENT [Suspect]
     Indication: ASTHMA
     Route: 055
     Dates: start: 20091001
  2. ALBUTEROL [Concomitant]
     Indication: ASTHMA
     Route: 055
  3. SERETIDE [Concomitant]
     Dosage: 2DF 2/1 DAYS
     Route: 055

REACTIONS (1)
  - ANAPHYLACTIC REACTION [None]
